FAERS Safety Report 7994136-6 (Version None)
Quarter: 2011Q4

REPORT INFORMATION
  Report Type: 
  Country: None (occurrence: None)
  Receive Date: 20111220
  Receipt Date: 20111207
  Transmission Date: 20120403
  Serious: Yes (Hospitalization, Other)
  Sender: FDA-Public Use
  Company Number: US-ELI_LILLY_AND_COMPANY-US201112002664

PATIENT
  Sex: Female

DRUGS (7)
  1. AMBIEN [Concomitant]
     Indication: SLEEP DISORDER
     Dosage: UNK
  2. VITAMIN D [Concomitant]
     Dosage: UNK
  3. HUMULIN 70/30 [Suspect]
     Indication: DIABETES MELLITUS
     Dosage: UNK UNK, TID
  4. VASOTEC [Concomitant]
     Indication: BLOOD PRESSURE
     Dosage: UNK
  5. HUMULIN 70/30 [Suspect]
     Dosage: UNK UNK, TID
     Dates: start: 19940101
  6. LIPITOR [Concomitant]
     Dosage: UNK
  7. XANAX [Concomitant]
     Indication: ANXIETY
     Dosage: UNK

REACTIONS (9)
  - PANCREATIC CYST [None]
  - BLOOD GLUCOSE INCREASED [None]
  - RENAL CANCER [None]
  - VISUAL ACUITY REDUCED [None]
  - CARCINOEMBRYONIC ANTIGEN INCREASED [None]
  - HEART RATE DECREASED [None]
  - INCORRECT PRODUCT STORAGE [None]
  - SCOTOMA [None]
  - DYSPNOEA EXERTIONAL [None]
